FAERS Safety Report 23871123 (Version 1)
Quarter: 2024Q2

REPORT INFORMATION
  Report Type: Spontaneous
  Country: US (occurrence: US)
  Receive Date: 20240518
  Receipt Date: 20240518
  Transmission Date: 20240715
  Serious: No
  Sender: FDA-Public Use
  Company Number: US-SANOFI-02041290

PATIENT
  Age: 8 Year
  Sex: Male

DRUGS (1)
  1. DUPIXENT [Suspect]
     Active Substance: DUPILUMAB
     Indication: Eosinophilic oesophagitis
     Dosage: 300 MG, QOW
     Dates: start: 20240502

REACTIONS (5)
  - Abdominal pain [Recovered/Resolved]
  - Lethargy [Recovered/Resolved]
  - Dyspnoea [Recovered/Resolved]
  - Body temperature increased [Recovered/Resolved]
  - Hypersensitivity [Recovered/Resolved]

NARRATIVE: CASE EVENT DATE: 20240502
